FAERS Safety Report 5692379-8 (Version None)
Quarter: 2008Q1

REPORT INFORMATION
  Report Type: 
  Country: None (occurrence: None)
  Receive Date: 20080331
  Receipt Date: 20080313
  Transmission Date: 20080703
  Serious: Yes (Hospitalization)
  Sender: FDA-Public Use
  Company Number: VNL_00845_2007

PATIENT
  Sex: Female

DRUGS (4)
  1. APO-GO [Suspect]
     Indication: PARKINSON'S DISEASE
     Dosage: (4 MG QID TEMPORARILY DISCONTINUED SUBCUTANEOUS)
     Route: 058
     Dates: start: 20070209, end: 20071003
  2. STALEVO 100 [Concomitant]
  3. MIRAPEXIN [Concomitant]
  4. DOMPERIDONE [Concomitant]

REACTIONS (1)
  - INJECTION SITE NECROSIS [None]
